FAERS Safety Report 24638260 (Version 1)
Quarter: 2024Q4

REPORT INFORMATION
  Report Type: Report from Study
  Country: FI (occurrence: FI)
  Receive Date: 20241119
  Receipt Date: 20241119
  Transmission Date: 20250115
  Serious: Yes (Hospitalization)
  Sender: MYLAN
  Company Number: FI-MYLANLABS-2024M1101355

PATIENT
  Sex: Female

DRUGS (12)
  1. CLOZAPINE [Suspect]
     Active Substance: CLOZAPINE
     Indication: Schizophrenia
     Dosage: 400 MILLIGRAM, QD (100 MG IN THE MORNING AND 300 MG IN THE EVENING DAILY)
     Route: 048
     Dates: start: 20220528, end: 20240819
  2. CLOZAPINE [Suspect]
     Active Substance: CLOZAPINE
     Dosage: UNK
     Route: 048
     Dates: start: 20240826
  3. LITHIUM CARBONATE [Concomitant]
     Active Substance: LITHIUM CARBONATE
     Dosage: UNK
     Route: 065
  4. BISOPROLOL [Concomitant]
     Active Substance: BISOPROLOL
     Dosage: 2.5 MILLIGRAM, QD (2.5 MG ONCE PER DAY ORALLY)
     Route: 048
  5. CANDESARTAN [Concomitant]
     Active Substance: CANDESARTAN
     Indication: Blood pressure abnormal
     Dosage: 4 MILLIGRAM, QD (4 MG ONCE PER DAY ORALLY)
     Route: 048
     Dates: start: 20220620
  6. METFORMIN HYDROCHLORIDE [Concomitant]
     Active Substance: METFORMIN HYDROCHLORIDE
     Dosage: 1 GRAM, BID (1 G TWICE PER DAY, ORALLY)
     Route: 048
  7. INCRUSE ELLIPTA [Concomitant]
     Active Substance: UMECLIDINIUM BROMIDE
     Dosage: 55 MICROGRAM, QD (1 DOSE ONCE PER DAY AS INHALATION)
     Route: 055
  8. NASONEX [Concomitant]
     Active Substance: MOMETASONE FUROATE
     Dosage: 50 MICROGRAM, QD (1 SPRAY ONCE PER DAY, NASALLY)
     Route: 045
  9. PANTOPRAZOLE SODIUM [Concomitant]
     Active Substance: PANTOPRAZOLE SODIUM
     Dosage: 40 MILLIGRAM, QD (40 MG ONCE PER DAY ORALLY)
     Route: 048
  10. CERALAN [Concomitant]
     Dosage: 1 DOSAGE FORM, PRN (1 SPRAY AS NEEDED, TO SKIN)
     Route: 061
  11. Tenox [Concomitant]
     Dosage: 20 MILLIGRAM, PRN (AS NEEDED, MAXIMUM SINGLE DOSE 20 MG, MAXIMUM DAILY DOSE 20 MG)
     Route: 048
  12. ALBUTEROL [Concomitant]
     Active Substance: ALBUTEROL
     Dosage: 1 MILLIGRAM, PRN (AS NEEDED, MAXIMUM SINGLE DOSE 2 MG, MAXIMUM DAILY DOSE 4 MG)
     Route: 055

REACTIONS (4)
  - Psychotic disorder [Unknown]
  - Neutrophil count decreased [Recovered/Resolved]
  - White blood cell count decreased [Recovered/Resolved]
  - Off label use [Unknown]

NARRATIVE: CASE EVENT DATE: 20240819
